FAERS Safety Report 6147085-2 (Version None)
Quarter: 2009Q2

REPORT INFORMATION
  Report Type: 
  Country: None (occurrence: None)
  Receive Date: 20090407
  Receipt Date: 20090330
  Transmission Date: 20091009
  Serious: Yes (Hospitalization, Other)
  Sender: FDA-Public Use
  Company Number: US-MERCK-0801USA03742

PATIENT
  Age: 70 Year
  Sex: Female

DRUGS (5)
  1. FOSAMAX [Suspect]
     Indication: OSTEOPOROSIS
     Route: 048
     Dates: end: 20030401
  2. FOSAMAX [Suspect]
     Route: 048
     Dates: start: 20030401, end: 20060731
  3. VERAPAMIL [Concomitant]
     Route: 065
     Dates: start: 20031012
  4. [THERAPY UNSPECIFIED] [Concomitant]
     Indication: HYPERCHOLESTEROLAEMIA
     Route: 065
     Dates: start: 20030101
  5. [THERAPY UNSPECIFIED] [Concomitant]
     Indication: HYPERTENSION
     Route: 065
     Dates: start: 19960101

REACTIONS (18)
  - BONE FRAGMENTATION [None]
  - DEPRESSION [None]
  - FISTULA [None]
  - GASTROINTESTINAL DISORDER [None]
  - HEADACHE [None]
  - HYPOACUSIS [None]
  - IMPAIRED HEALING [None]
  - JAW DISORDER [None]
  - MASTICATION DISORDER [None]
  - MEDICAL DEVICE PAIN [None]
  - MYALGIA [None]
  - MYOFASCIAL PAIN SYNDROME [None]
  - ORAL DISORDER [None]
  - ORAL INFECTION [None]
  - OSTEOMYELITIS CHRONIC [None]
  - OSTEONECROSIS [None]
  - SLEEP DISORDER [None]
  - STOMATITIS [None]
